FAERS Safety Report 5308672-4 (Version None)
Quarter: 2007Q2

REPORT INFORMATION
  Report Type: 
  Country: None (occurrence: None)
  Receive Date: 20070426
  Receipt Date: 20070424
  Transmission Date: 20071010
  Serious: Yes (Other)
  Sender: FDA-Public Use
  Company Number: US-GLAXOSMITHKLINE-A0639512A

PATIENT
  Age: 1 Year
  Sex: Female

DRUGS (1)
  1. LAMICTAL [Suspect]
     Indication: PARTIAL SEIZURES
     Dates: start: 20020101

REACTIONS (2)
  - DRUG EXPOSURE DURING PREGNANCY [None]
  - JUVENILE ARTHRITIS [None]
